FAERS Safety Report 12174716 (Version 1)
Quarter: 2016Q1

REPORT INFORMATION
  Report Type: Report from Study
  Country: US (occurrence: US)
  Receive Date: 20160314
  Receipt Date: 20160314
  Transmission Date: 20160526
  Serious: Yes (Other)
  Sender: FDA-Public Use
  Company Number: US-AMGEN-USASL2016028256

PATIENT
  Age: 62 Year
  Sex: Male

DRUGS (2)
  1. ENBREL [Suspect]
     Active Substance: ETANERCEPT
     Indication: PSORIASIS
     Dosage: 50 MG, 2 TIMES/WK
     Route: 065
     Dates: start: 20120611, end: 201512
  2. ENBREL [Suspect]
     Active Substance: ETANERCEPT
     Indication: PSORIATIC ARTHROPATHY

REACTIONS (11)
  - Psoriasis [Unknown]
  - Fatigue [Unknown]
  - Intentional product misuse [Unknown]
  - Glaucoma [Unknown]
  - Cataract [Unknown]
  - Psoriatic arthropathy [Unknown]
  - Autoimmune disorder [Unknown]
  - Depression suicidal [Unknown]
  - Shoulder operation [Unknown]
  - Arthropathy [Unknown]
  - Blindness [Unknown]

NARRATIVE: CASE EVENT DATE: 20120611
